FAERS Safety Report 14166480 (Version 2)
Quarter: 2017Q4

REPORT INFORMATION
  Report Type: Report from Study
  Country: None (occurrence: US)
  Receive Date: 20171107
  Receipt Date: 20171117
  Transmission Date: 20180321
  Serious: No
  Sender: FDA-Public Use
  Company Number: US-ABBVIE-17K-163-2099315-00

PATIENT
  Sex: Male

DRUGS (2)
  1. HUMIRA [Suspect]
     Active Substance: ADALIMUMAB
     Indication: ANKYLOSING SPONDYLITIS
     Route: 058
  2. NAPROXEN. [Concomitant]
     Active Substance: NAPROXEN
     Indication: PRODUCT USED FOR UNKNOWN INDICATION

REACTIONS (11)
  - Mass [Unknown]
  - Ankylosing spondylitis [Unknown]
  - Trigger finger [Unknown]
  - Musculoskeletal stiffness [Unknown]
  - Ankylosing spondylitis [Recovered/Resolved]
  - Arthralgia [Unknown]
  - Drug ineffective [Recovered/Resolved]
  - Swelling [Unknown]
  - Hepatic enzyme increased [Unknown]
  - Ligament sprain [Unknown]
  - Joint adhesion [Unknown]

NARRATIVE: CASE EVENT DATE: 2017
